FAERS Safety Report 25917326 (Version 1)
Quarter: 2025Q4

REPORT INFORMATION
  Report Type: Spontaneous
  Country: EU (occurrence: EU)
  Receive Date: 20251014
  Receipt Date: 20251014
  Transmission Date: 20260118
  Serious: Yes (Other)
  Sender: SANDOZ
  Company Number: EU-SANDOZ-SDZ2025DE068273

PATIENT

DRUGS (2)
  1. PRAMIPEXOLE DIHYDROCHLORIDE [Suspect]
     Active Substance: PRAMIPEXOLE DIHYDROCHLORIDE
     Indication: Restless legs syndrome
     Dosage: BID; TAKE 1 IN THE MORNING AND 1 IN THE EVENING (0.52)
     Route: 065
  2. PRAMIPEXOLE DIHYDROCHLORIDE [Suspect]
     Active Substance: PRAMIPEXOLE DIHYDROCHLORIDE
     Dosage: HALF A MG DOSE (0.26)- 2 IN THE MORNING AND 2 IN THE EVENING, STRENGTH: 0.52 MG
     Route: 065

REACTIONS (6)
  - Drug dependence [Unknown]
  - Insomnia [Unknown]
  - Therapeutic response shortened [Unknown]
  - Circumstance or information capable of leading to medication error [Unknown]
  - Product use in unapproved indication [Unknown]
  - Product availability issue [Unknown]
